FAERS Safety Report 8303686-4 (Version None)
Quarter: 2012Q2

REPORT INFORMATION
  Report Type: 
  Country: None (occurrence: None)
  Receive Date: 20120423
  Receipt Date: 20120417
  Transmission Date: 20120825
  Serious: Yes (Other)
  Sender: FDA-Public Use
  Company Number: DE-PFIZER INC-2012058202

PATIENT
  Age: 71 Year
  Sex: Female
  Weight: 80 kg

DRUGS (2)
  1. ZOLEDRONIC [Suspect]
     Dosage: UNK
  2. EXEMESTANE [Concomitant]
     Indication: BREAST CANCER
     Dosage: 4 MG, UNK
     Route: 048
     Dates: start: 20111214

REACTIONS (1)
  - IRIDOCYCLITIS [None]
